FAERS Safety Report 8203728-0 (Version None)
Quarter: 2012Q1

REPORT INFORMATION
  Report Type: 
  Country: None (occurrence: None)
  Receive Date: 20120308
  Receipt Date: 20120227
  Transmission Date: 20120608
  Serious: Yes (Hospitalization)
  Sender: FDA-Public Use
  Company Number: TIF2012A00019

PATIENT
  Age: 75 Year
  Sex: Male

DRUGS (4)
  1. METFORMINA (METFORMIN) [Concomitant]
  2. TAMSULOSIN HCL [Concomitant]
  3. PIOGLITAZONE HYDROCHLORIDE [Suspect]
     Indication: DIABETES MELLITUS
     Dosage: 30 MG
     Dates: start: 20080101, end: 20120201
  4. HYDROCHLORIDE (TAMSULOSIN HYDROCHLORIDE) [Concomitant]

REACTIONS (1)
  - BLADDER TRANSITIONAL CELL CARCINOMA [None]
